FAERS Safety Report 4638159-3 (Version None)
Quarter: 2005Q2

REPORT INFORMATION
  Report Type: 
  Country: None (occurrence: None)
  Receive Date: 20050415
  Receipt Date: 20050324
  Transmission Date: 20051028
  Serious: Yes (Hospitalization)
  Sender: FDA-Public Use
  Company Number: USA050392419

PATIENT
  Age: 50 Year
  Sex: Female
  Weight: 74 kg

DRUGS (15)
  1. GEMZAR [Suspect]
     Dosage: 1000 MG/M2
     Dates: start: 20041230, end: 20050217
  2. ANZEMET (DOLASETRON MESILATE) [Concomitant]
  3. ZOFRAN [Concomitant]
  4. DECADRON [Concomitant]
  5. ATIVAN [Concomitant]
  6. NEULASTA [Concomitant]
  7. ARANESP [Concomitant]
  8. PROZAC [Concomitant]
  9. SYNTHROID [Concomitant]
  10. ALLEGRA [Concomitant]
  11. AMBIEN [Concomitant]
  12. SENNA [Concomitant]
  13. MULTI-VITAMIN [Concomitant]
  14. OXYCODONE [Concomitant]
  15. COMPAZINE [Concomitant]

REACTIONS (4)
  - BLOOD BILIRUBIN INCREASED [None]
  - HAEMOLYSIS [None]
  - PLATELET COUNT DECREASED [None]
  - PYREXIA [None]
